FAERS Safety Report 25645684 (Version 1)
Quarter: 2025Q3

REPORT INFORMATION
  Report Type: Spontaneous
  Country: MY (occurrence: MY)
  Receive Date: 20250805
  Receipt Date: 20250805
  Transmission Date: 20251021
  Serious: Yes (Other)
  Sender: Kenvue
  Company Number: MY-GSK-MY2025APC094863

PATIENT

DRUGS (2)
  1. CETIRIZINE HYDROCHLORIDE [Suspect]
     Active Substance: CETIRIZINE HYDROCHLORIDE
     Indication: Eye pruritus
     Route: 048
  2. CETIRIZINE HYDROCHLORIDE [Suspect]
     Active Substance: CETIRIZINE HYDROCHLORIDE
     Indication: Product use in unapproved indication

REACTIONS (5)
  - Dizziness [Recovering/Resolving]
  - Periorbital swelling [Recovering/Resolving]
  - Dyspnoea [Recovering/Resolving]
  - Eye discharge [Recovering/Resolving]
  - Product use in unapproved indication [Unknown]
